FAERS Safety Report 19330411 (Version 2)
Quarter: 2021Q2

REPORT INFORMATION
  Report Type: Spontaneous
  Country: US (occurrence: US)
  Receive Date: 20210528
  Receipt Date: 20210602
  Transmission Date: 20210717
  Serious: Yes (Hospitalization)
  Sender: FDA-Public Use
  Company Number: US-PFIZER INC-2020448702

PATIENT
  Age: 65 Year
  Sex: Male
  Weight: 79.38 kg

DRUGS (5)
  1. LYRICA [Suspect]
     Active Substance: PREGABALIN
     Indication: SPINAL OPERATION
  2. INSULIN [Concomitant]
     Active Substance: INSULIN NOS
     Indication: DIABETES MELLITUS
     Dosage: UNK
  3. LYRICA [Suspect]
     Active Substance: PREGABALIN
     Indication: PAIN
     Dosage: 600 MG, DAILY (1 CAP DAILY IN THE MORNING, 1 CAP DAILY AT NOON, AND 2 CAP AT BEDTIME)
     Route: 048
  4. LYRICA [Suspect]
     Active Substance: PREGABALIN
     Indication: BACK PAIN
     Dosage: UNK, DAILY (50 PILLS A DAY)
  5. LIDOCAINE. [Concomitant]
     Active Substance: LIDOCAINE
     Dosage: UNK, PATCHES

REACTIONS (9)
  - Multi-organ disorder [Unknown]
  - Body height decreased [Unknown]
  - Limb discomfort [Unknown]
  - Angiopathy [Unknown]
  - Intentional overdose [Unknown]
  - Hypoaesthesia [Unknown]
  - Pain in extremity [Unknown]
  - Pain [Unknown]
  - Peripheral vascular disorder [Unknown]
